FAERS Safety Report 25771237 (Version 1)
Quarter: 2025Q3

REPORT INFORMATION
  Report Type: Spontaneous
  Country: US (occurrence: US)
  Receive Date: 20250908
  Receipt Date: 20250908
  Transmission Date: 20251021
  Serious: No
  Sender: DOMPE FARMACEUTICI
  Company Number: US-FARMAPROD-202504-1136

PATIENT
  Sex: Male

DRUGS (5)
  1. OXERVATE [Suspect]
     Active Substance: CENEGERMIN-BKBJ
     Indication: Neurotrophic keratopathy
     Route: 047
     Dates: start: 20250326
  2. OXERVATE [Suspect]
     Active Substance: CENEGERMIN-BKBJ
  3. ASPIRIN [Concomitant]
     Active Substance: ASPIRIN
  4. SYSTANE (HYPROMELLOSE 2910 (4000 MPA.S)) [Concomitant]
     Active Substance: HYPROMELLOSE 2910 (4000 MPA.S)
  5. IVIZIA [Concomitant]
     Active Substance: POVIDONE

REACTIONS (7)
  - Headache [Unknown]
  - Periorbital pain [Unknown]
  - Eye pain [Unknown]
  - Eye discharge [Not Recovered/Not Resolved]
  - Eye irritation [Unknown]
  - Lacrimation increased [Unknown]
  - Eye irritation [Unknown]
